FAERS Safety Report 5589727-6 (Version None)
Quarter: 2008Q1

REPORT INFORMATION
  Report Type: 
  Country: None (occurrence: None)
  Receive Date: 20080114
  Receipt Date: 20080110
  Transmission Date: 20080703
  Serious: Yes (Hospitalization)
  Sender: FDA-Public Use
  Company Number: B0502417A

PATIENT
  Age: 38 Year
  Sex: Male

DRUGS (3)
  1. CLAMOXYL [Suspect]
     Indication: GASTRIC ULCER HELICOBACTER
     Route: 048
     Dates: start: 20070105, end: 20070105
  2. ZECLAR [Concomitant]
     Indication: GASTRIC ULCER HELICOBACTER
     Route: 048
     Dates: start: 20070105
  3. INEXIUM [Concomitant]
     Indication: GASTRIC ULCER HELICOBACTER
     Route: 048
     Dates: start: 20070105

REACTIONS (2)
  - HYPOTENSION [None]
  - URTICARIA [None]
